FAERS Safety Report 4689379-3 (Version None)
Quarter: 2005Q2

REPORT INFORMATION
  Report Type: 
  Country: None (occurrence: None)
  Receive Date: 20050608
  Receipt Date: 20050209
  Transmission Date: 20051028
  Serious: No
  Sender: FDA-Public Use
  Company Number: 2005-BP-01258BP

PATIENT
  Age: 72 Year
  Sex: Female

DRUGS (7)
  1. SPIRIVA [Suspect]
     Indication: CHRONIC OBSTRUCTIVE PULMONARY DISEASE
     Dosage: 18 MCG (18 MCG, 1 PUFF QD), IH
     Route: 055
     Dates: start: 20041201
  2. SPIRIVA [Suspect]
  3. LESCOL [Concomitant]
  4. HYDROCHLOROTHIAZIDE [Concomitant]
  5. COZAAR [Concomitant]
  6. IPRATROPIUM BROMIDE [Concomitant]
  7. PRILOSEC [Concomitant]

REACTIONS (2)
  - COUGH [None]
  - PRODUCTIVE COUGH [None]
